FAERS Safety Report 12765831 (Version 1)
Quarter: 2016Q3

REPORT INFORMATION
  Report Type: Spontaneous
  Country: US (occurrence: US)
  Receive Date: 20160920
  Receipt Date: 20160920
  Transmission Date: 20161109
  Serious: No
  Sender: FDA-Public Use
  Company Number: None

PATIENT
  Age: 38 Year
  Sex: Female
  Weight: 62 kg

DRUGS (3)
  1. MUCINEX D [Suspect]
     Active Substance: GUAIFENESIN\PSEUDOEPHEDRINE HYDROCHLORIDE
     Indication: RESPIRATORY DISORDER
     Dosage: OTHER STRENGTH:;OTHER DOSE:;OTHER FREQUENCY:ONE TIME ONLY;OTHER ROUTE:
     Route: 048
     Dates: start: 20160919, end: 20160919
  2. IBUPROFEN. [Concomitant]
     Active Substance: IBUPROFEN
  3. CAMOMILLE TEA [Concomitant]

REACTIONS (2)
  - Piloerection [None]
  - Chills [None]

NARRATIVE: CASE EVENT DATE: 20160919
